FAERS Safety Report 9221114 (Version 5)
Quarter: 2013Q3

REPORT INFORMATION
  Report Type: Spontaneous
  Country: US (occurrence: US)
  Receive Date: 20130409
  Receipt Date: 20130906
  Transmission Date: 20140515
  Serious: Yes (Other)
  Sender: FDA-Public Use
  Company Number: US-009507513-1303USA011794

PATIENT
  Age: 61 Year
  Sex: Male
  Weight: 92.52 kg

DRUGS (22)
  1. VICTRELIS [Suspect]
     Indication: CHRONIC HEPATITIS C
     Dosage: 200 MG, TID
     Route: 048
     Dates: start: 20130118, end: 20130728
  2. RIBAVIRIN [Suspect]
     Indication: CHRONIC HEPATITIS C
     Dosage: 1200 MG DAILY DIVIDED DOSES ORALLY
     Route: 048
     Dates: start: 20130121, end: 2013
  3. RIBAVIRIN [Suspect]
     Dosage: 200 MG, TID
     Route: 048
     Dates: start: 20130312, end: 20130728
  4. PEGASYS [Suspect]
     Indication: CHRONIC HEPATITIS C
     Dosage: 180 MICROGRAM, QW
     Route: 058
     Dates: start: 20130121, end: 2013
  5. PEGASYS [Suspect]
     Dosage: 135 MICROGRAM, QW
     Route: 058
     Dates: start: 20130312, end: 2013
  6. PEGASYS [Suspect]
     Dosage: 90 MICROGRAM, QW
     Route: 065
     Dates: start: 2013, end: 20130728
  7. HYDROCHLOROTHIAZIDE [Concomitant]
     Dosage: REPORTED AS 25 MG QD AND AS 75 MG QD
  8. BUSPIRONE HYDROCHLORIDE [Concomitant]
     Dosage: 7.5 MG, BID
  9. BUPROPION HYDROCHLORIDE [Concomitant]
     Dosage: 150 MG, BID
  10. GABAPENTIN [Concomitant]
     Dosage: 300 MG, TID
  11. AMLODIPINE [Concomitant]
     Dosage: 10 MG, QD
  12. OMEGA-3 MARINE TRIGLYCERIDES [Concomitant]
     Dosage: UNK UNK, TID
  13. CLONIDINE [Concomitant]
     Dosage: 0.5 MG, BID, AS NEEDED
  14. LISINOPRIL [Concomitant]
     Dosage: 40 MG, QD
  15. FENTANYL [Concomitant]
     Dosage: 25 MICROGRAM, PATCH, CHANGED EVERY 72 HOURS
  16. CLONAZEPAM [Concomitant]
     Dosage: 0.5 MG, BID, AS NEEDED
  17. SIMETHICONE [Concomitant]
     Dosage: 0.5 MG PRN , BID
  18. BENADRYL [Concomitant]
     Dosage: 25 MG, 1 OR 2 AS NEEDED
  19. AMITRIPTYLINE HYDROCHLORIDE [Concomitant]
     Dosage: 25 MG, HS
  20. CLARITIN [Concomitant]
     Indication: CHRONIC HEPATITIS C
     Dosage: 10 MG, QD
     Route: 048
  21. HYDROXYZINE HYDROCHLORIDE [Concomitant]
     Dosage: 25 MG, UNK
  22. EPOETIN ALFA [Concomitant]

REACTIONS (13)
  - Pruritus [Recovering/Resolving]
  - Anaemia [Not Recovered/Not Resolved]
  - Fatigue [Unknown]
  - Influenza like illness [Unknown]
  - Pyrexia [Unknown]
  - Haemoglobin increased [Unknown]
  - Fatigue [Not Recovered/Not Resolved]
  - Nausea [Not Recovered/Not Resolved]
  - Decreased appetite [Not Recovered/Not Resolved]
  - Weight decreased [Unknown]
  - Full blood count decreased [Unknown]
  - Feeling abnormal [Unknown]
  - Balance disorder [Unknown]
